FAERS Safety Report 5905221-4 (Version None)
Quarter: 2008Q3

REPORT INFORMATION
  Report Type: 
  Country: None (occurrence: None)
  Receive Date: 20080909
  Receipt Date: 20071105
  Transmission Date: 20090109
  Serious: Yes (Death)
  Sender: FDA-Public Use
  Company Number: 163-20785-07100712

PATIENT
  Age: 66 Year
  Sex: Female

DRUGS (2)
  1. THALOMID [Suspect]
     Indication: MYELOFIBROSIS
     Dosage: 100MG-400MG, DAILY, ORAL
     Route: 048
     Dates: start: 20050128, end: 20070101
  2. THALOMID [Suspect]
     Indication: SPLENOMEGALY
     Dosage: 100MG-400MG, DAILY, ORAL
     Route: 048
     Dates: start: 20050128, end: 20070101

REACTIONS (2)
  - ACUTE LEUKAEMIA [None]
  - NEUROPATHY PERIPHERAL [None]
